FAERS Safety Report 4520601-X (Version None)
Quarter: 2004Q4

REPORT INFORMATION
  Report Type: 
  Country: None (occurrence: None)
  Receive Date: 20041203
  Receipt Date: 20041123
  Transmission Date: 20050328
  Serious: Yes (Life-Threatening, Hospitalization)
  Sender: FDA-Public Use
  Company Number: 210332

PATIENT
  Age: 58 Year
  Sex: Female
  Weight: 60.3 kg

DRUGS (8)
  1. AVASTIN [Suspect]
     Indication: COLON CANCER
     Dosage: 340 MG, Q2W, INTRAVENOUS
     Route: 042
     Dates: start: 20040324, end: 20040825
  2. OXALIPLATIN [Suspect]
     Indication: COLON CANCER
     Dates: start: 20020911, end: 20040801
  3. FLUOROURACIL [Concomitant]
  4. LEUCOVORIN CALCIUM [Concomitant]
  5. TYLENOL [Concomitant]
  6. COMPAZINE [Concomitant]
  7. FIORICET (ACETAMINOPHEN, BUTALBITAL, CAFFEINE) [Concomitant]
  8. ATIVAN [Concomitant]

REACTIONS (1)
  - ACUTE MYELOID LEUKAEMIA [None]
